FAERS Safety Report 5257988-9 (Version None)
Quarter: 2007Q1

REPORT INFORMATION
  Report Type: 
  Country: None (occurrence: None)
  Receive Date: 20070307
  Receipt Date: 20061128
  Transmission Date: 20070707
  Serious: No
  Sender: FDA-Public Use
  Company Number: US-GLAXOSMITHKLINE-A0628966A

PATIENT
  Age: 46 Year
  Sex: Female

DRUGS (6)
  1. REQUIP [Suspect]
     Indication: RESTLESS LEGS SYNDROME
     Dosage: .25MG PER DAY
     Route: 048
     Dates: start: 20061121
  2. CLONAZEPAM [Concomitant]
  3. MEPROZINE [Concomitant]
  4. SYNTHROID [Concomitant]
  5. SULINDAC [Concomitant]
  6. MICROGESTIN FE 1/20 [Concomitant]

REACTIONS (3)
  - DISTURBANCE IN ATTENTION [None]
  - SLEEP DISORDER [None]
  - TINNITUS [None]
